FAERS Safety Report 9449679 (Version 1)
Quarter: 2013Q3

REPORT INFORMATION
  Report Type: Spontaneous
  Country: US (occurrence: US)
  Receive Date: 20130809
  Receipt Date: 20130809
  Transmission Date: 20140515
  Serious: No
  Sender: FDA-Public Use
  Company Number: US-BAYER-2013-095740

PATIENT
  Age: 30 Year
  Sex: Female
  Weight: 65.76 kg

DRUGS (8)
  1. BETASERON [Suspect]
     Dosage: 0.25 MG, QOD
     Route: 058
     Dates: end: 201207
  2. ADVIL [Concomitant]
     Dosage: 200 MG, UNK
  3. VITAMIN D [Concomitant]
     Dosage: 400 U, UNK
  4. VITAMIN B6 [Concomitant]
     Dosage: 50 MG, UNK
  5. VITAMIN C [Concomitant]
  6. LUTEIN [Concomitant]
  7. BILBERRY [Concomitant]
  8. OMEGA-3 [Concomitant]

REACTIONS (1)
  - Exposure during pregnancy [None]
